FAERS Safety Report 8009535-6 (Version None)
Quarter: 2011Q4

REPORT INFORMATION
  Report Type: 
  Country: None (occurrence: None)
  Receive Date: 20111227
  Receipt Date: 20111221
  Transmission Date: 20120403
  Serious: Yes (Life-Threatening, Other)
  Sender: FDA-Public Use
  Company Number: US-ASTRAZENECA-2010SE26184

PATIENT
  Age: 51 Year
  Sex: Male
  Weight: 78.9 kg

DRUGS (19)
  1. ZANTAC [Concomitant]
  2. EFFEXOR [Concomitant]
  3. KLONOPIN [Concomitant]
  4. PRILOSEC OTC [Suspect]
     Route: 048
  5. LORATADINE [Concomitant]
  6. SIMVASTATIN [Concomitant]
  7. DEPAKOTE [Concomitant]
  8. LAMICTAL [Concomitant]
  9. SUCRALFATE [Concomitant]
  10. NEXIUM [Suspect]
     Indication: GASTROOESOPHAGEAL REFLUX DISEASE
     Route: 048
     Dates: start: 20070423, end: 20110411
  11. AVAPRO [Concomitant]
  12. PROAIR HFA [Concomitant]
     Dosage: TWO PUFFS
  13. PATANOL [Concomitant]
     Route: 047
  14. PREVACID [Concomitant]
  15. NAFTIFINE [Concomitant]
  16. NEXIUM [Suspect]
     Route: 048
  17. PRILOSEC [Suspect]
     Route: 048
  18. ABILIFY [Concomitant]
  19. LOVAZA [Concomitant]

REACTIONS (24)
  - BLOOD PRESSURE INADEQUATELY CONTROLLED [None]
  - TACHYPHRENIA [None]
  - BIPOLAR DISORDER [None]
  - DIZZINESS [None]
  - INAPPROPRIATE SCHEDULE OF DRUG ADMINISTRATION [None]
  - GASTROOESOPHAGEAL REFLUX DISEASE [None]
  - BIPOLAR I DISORDER [None]
  - SOMNOLENCE [None]
  - MALAISE [None]
  - GENERAL PHYSICAL HEALTH DETERIORATION [None]
  - HYPERTENSION [None]
  - RESPIRATORY FAILURE [None]
  - HYPERCHLORHYDRIA [None]
  - BRADYPHRENIA [None]
  - PSYCHOMOTOR HYPERACTIVITY [None]
  - MANIA [None]
  - GASTRIC DISORDER [None]
  - BACK DISORDER [None]
  - HEADACHE [None]
  - DRUG INEFFECTIVE [None]
  - DISCOMFORT [None]
  - IRRITABLE BOWEL SYNDROME [None]
  - DIZZINESS POSTURAL [None]
  - DRUG DOSE OMISSION [None]
